FAERS Safety Report 7438948-6 (Version None)
Quarter: 2011Q2

REPORT INFORMATION
  Report Type: 
  Country: None (occurrence: None)
  Receive Date: 20110426
  Receipt Date: 20110411
  Transmission Date: 20111010
  Serious: Yes (Other)
  Sender: FDA-Public Use
  Company Number: US-BAYER-2011-031582

PATIENT
  Sex: Female

DRUGS (1)
  1. AVELOX [Suspect]
     Indication: SINUSITIS
     Dosage: 400 MG, QD
     Route: 048
     Dates: start: 20101217, end: 20101217

REACTIONS (8)
  - SWELLING FACE [None]
  - ANAPHYLACTIC REACTION [None]
  - FLUSHING [None]
  - URTICARIA [None]
  - PRURITUS [None]
  - THROAT TIGHTNESS [None]
  - DYSPNOEA [None]
  - HEADACHE [None]
